FAERS Safety Report 25687810 (Version 2)
Quarter: 2025Q3

REPORT INFORMATION
  Report Type: Spontaneous
  Country: US (occurrence: US)
  Receive Date: 20250817
  Receipt Date: 20250905
  Transmission Date: 20251020
  Serious: No
  Sender: SANOFI AVENTIS
  Company Number: US-SA-2025SA240617

PATIENT
  Sex: Female
  Weight: 102.5 kg

DRUGS (2)
  1. DUPIXENT [Suspect]
     Active Substance: DUPILUMAB
     Indication: Dermatitis atopic
     Dosage: 300 MG, QOW
     Route: 058
  2. OTEZLA [Suspect]
     Active Substance: APREMILAST
     Indication: Arthralgia
     Route: 065

REACTIONS (5)
  - Weight increased [Unknown]
  - Nausea [Unknown]
  - Somnolence [Unknown]
  - Eczema [Unknown]
  - Arthralgia [Unknown]
